FAERS Safety Report 10788713 (Version 1)
Quarter: 2015Q1

REPORT INFORMATION
  Report Type: Spontaneous
  Country: None (occurrence: None)
  Receive Date: 20150211
  Receipt Date: 20150211
  Transmission Date: 20150721
  Serious: No
  Sender: FDA-Public Use
  Company Number: None

PATIENT
  Age: 18 Year
  Sex: Male
  Weight: 122.93 kg

DRUGS (1)
  1. CYLERT [Suspect]
     Active Substance: PEMOLINE
     Dosage: RITALIN TWICE DAILY TAKEN BY MOUTH
     Route: 048

REACTIONS (1)
  - Hair growth abnormal [None]
